FAERS Safety Report 7474881-1 (Version None)
Quarter: 2011Q2

REPORT INFORMATION
  Report Type: 
  Country: None (occurrence: None)
  Receive Date: 20110512
  Receipt Date: 20110418
  Transmission Date: 20111010
  Serious: Yes (Other)
  Sender: FDA-Public Use
  Company Number: US-BAYER-2011-016372

PATIENT
  Age: 18 Year
  Sex: Female
  Weight: 59.41 kg

DRUGS (2)
  1. MIRENA [Suspect]
     Indication: CONTRACEPTION
     Dosage: 20 MG, DAILY
     Route: 015
     Dates: start: 20101025, end: 20101124
  2. MIRENA [Suspect]
     Dosage: 20 MCG/24HR, UNK
     Route: 015
     Dates: start: 20110121

REACTIONS (2)
  - UTERINE PERFORATION [None]
  - ABDOMINAL PAIN [None]
